FAERS Safety Report 6360929-4 (Version None)
Quarter: 2009Q3

REPORT INFORMATION
  Report Type: 
  Country: None (occurrence: None)
  Receive Date: 20090918
  Receipt Date: 20090909
  Transmission Date: 20100115
  Serious: Yes (Hospitalization)
  Sender: FDA-Public Use
  Company Number: PHHO2009BE11043

PATIENT
  Sex: Male
  Weight: 81 kg

DRUGS (2)
  1. RAD 666 RAD++PTR [Suspect]
     Dosage: 250
     Route: 048
     Dates: start: 20060626
  2. ZESTRIL [Concomitant]
     Indication: HYPERTENSION

REACTIONS (4)
  - HAEMATURIA [None]
  - KIDNEY TRANSPLANT REJECTION [None]
  - POST PROCEDURAL COMPLICATION [None]
  - VASCULAR PSEUDOANEURYSM [None]
